FAERS Safety Report 4646418-3 (Version None)
Quarter: 2005Q2

REPORT INFORMATION
  Report Type: 
  Country: None (occurrence: None)
  Receive Date: 20050427
  Receipt Date: 20041203
  Transmission Date: 20051028
  Serious: No
  Sender: FDA-Public Use
  Company Number: US-GLAXOSMITHKLINE-A0536020A

PATIENT
  Age: 69 Year
  Sex: Male

DRUGS (3)
  1. SEREVENT [Suspect]
     Indication: ASTHMA
     Dosage: 50MCG TWICE PER DAY
     Route: 055
  2. AZMACORT [Concomitant]
  3. THEOPHYLLINE [Concomitant]

REACTIONS (3)
  - EAR DISORDER [None]
  - RHINITIS [None]
  - TINNITUS [None]
